FAERS Safety Report 9036864 (Version 2)
Quarter: 2013Q1

REPORT INFORMATION
  Report Type: Spontaneous
  Country: US (occurrence: None)
  Receive Date: 20121217
  Receipt Date: 20130122
  Transmission Date: 20140127
  Serious: Yes (Other)
  Sender: FDA-Public Use
  Company Number: 2012034191

PATIENT
  Age: 3 Year
  Sex: Male

DRUGS (1)
  1. ANTIHEMOPHILIC FACTOR, HUMAN RECOMBINANT [Suspect]
     Indication: FACTOR VIII DEFICIENCY

REACTIONS (1)
  - No therapeutic response [None]
